FAERS Safety Report 4314022-2 (Version None)
Quarter: 2004Q1

REPORT INFORMATION
  Report Type: 
  Country: None (occurrence: None)
  Receive Date: 20040305
  Receipt Date: 20040226
  Transmission Date: 20041129
  Serious: Yes (Other)
  Sender: FDA-Public Use
  Company Number: 2003118173

PATIENT
  Age: 30 Year
  Sex: Female

DRUGS (2)
  1. RELPAX [Suspect]
     Indication: MIGRAINE
     Dosage: 20 MG (PRN), ORAL
     Route: 048
     Dates: start: 20020802, end: 20030801
  2. CARBAMAZEPINE [Suspect]
     Indication: CONVULSION
     Dosage: 400 MG (200, BID)
     Dates: start: 20030417, end: 20030420

REACTIONS (14)
  - AMNESIA [None]
  - ARRHYTHMIA [None]
  - COMPLEX PARTIAL SEIZURES [None]
  - CONVULSION [None]
  - CYANOSIS [None]
  - DISTURBANCE IN ATTENTION [None]
  - DRUG ERUPTION [None]
  - EPILEPSY [None]
  - FALL [None]
  - FEELING ABNORMAL [None]
  - GRAND MAL CONVULSION [None]
  - LOSS OF CONSCIOUSNESS [None]
  - RESPIRATORY ARREST [None]
  - VISION BLURRED [None]
